FAERS Safety Report 13990773 (Version 1)
Quarter: 2017Q3

REPORT INFORMATION
  Report Type: Spontaneous
  Country: US (occurrence: US)
  Receive Date: 20170920
  Receipt Date: 20170920
  Transmission Date: 20171128
  Serious: No
  Sender: FDA-Public Use
  Company Number: US-PFIZER INC-2017405819

PATIENT
  Sex: Female
  Weight: 107.94 kg

DRUGS (14)
  1. LORATADINE. [Concomitant]
     Active Substance: LORATADINE
     Dosage: 10 MG, DAILY
     Route: 048
  2. PROBIOTIC ACIDOPHILUS XTRA [Concomitant]
     Dosage: 1 DF, DAILY
     Route: 048
  3. CYCLOBENZAPRINE HCL [Concomitant]
     Active Substance: CYCLOBENZAPRINE HYDROCHLORIDE
     Dosage: 10 MG, AS NEEDED (1 TABLET (ORAL) THREE TIMES DAILY)
     Route: 048
     Dates: start: 20160827
  4. OMEPRAZOLE. [Concomitant]
     Active Substance: OMEPRAZOLE
     Dosage: 20 MG, 1X/DAY
     Route: 048
     Dates: start: 20170410
  5. LACTAID FAST ACT [Concomitant]
     Active Substance: LACTASE
     Dosage: 9000 IU, DAILY
     Route: 048
  6. VITAMIN D [Concomitant]
     Active Substance: CHOLECALCIFEROL
     Dosage: 1000 IU, 1X/DAY(QD)
     Route: 048
     Dates: start: 20160827
  7. LYRICA [Concomitant]
     Active Substance: PREGABALIN
     Dosage: 75 MG, 2X/DAY
     Route: 048
     Dates: start: 20170606
  8. NUVARING [Concomitant]
     Active Substance: ETHINYL ESTRADIOL\ETONOGESTREL
     Indication: WITHDRAWAL BLEED
     Dosage: 0.12-0.015 MG/24HR RING PLACE IN VAGINA, KEEP IN 3 WEEKS, THEN PLACE NEW RING X 3 MORE CYCLES
     Route: 067
     Dates: start: 20160913
  9. GABAPENTIN. [Suspect]
     Active Substance: GABAPENTIN
     Dosage: UNK
  10. RANITIDINE HCL [Concomitant]
     Active Substance: RANITIDINE HYDROCHLORIDE
     Dosage: 150 MG, AS NEEDED (DAILY AS NEEDED)
     Route: 048
  11. HYDROXYZINE HCL [Concomitant]
     Active Substance: HYDROXYZINE HYDROCHLORIDE
     Indication: PRURITUS
     Dosage: UNK UNK, 4X/DAY (1-2 (ORAL) UP TO 4 TIMES)
     Route: 048
     Dates: start: 20160706
  12. SUMATRIPTAN SUCCINATE. [Concomitant]
     Active Substance: SUMATRIPTAN SUCCINATE
     Indication: HEADACHE
     Dosage: 100 MG, UNK(AT HEADACHE ONSET)
     Route: 048
     Dates: start: 20170606
  13. FLUTICASONE PROPIONATE. [Concomitant]
     Active Substance: FLUTICASONE PROPIONATE
     Dosage: UNK UNK, 1X/DAY (1 SPRAY (NASAL) TO EACH NOSTRIL QD) (50 MCG/ACT)
     Route: 045
     Dates: start: 20160706
  14. ONDANSETRON HCL [Concomitant]
     Active Substance: ONDANSETRON HYDROCHLORIDE
     Indication: NAUSEA
     Dosage: 8 MG, UNK(TAKE AT FIRST SIGN NAUSEA)
     Route: 048
     Dates: start: 20170606

REACTIONS (4)
  - Pain [Unknown]
  - Weight increased [Unknown]
  - Drug ineffective [Unknown]
  - Alopecia [Unknown]
